FAERS Safety Report 23383618 (Version 4)
Quarter: 2025Q3

REPORT INFORMATION
  Report Type: Spontaneous
  Country: US (occurrence: US)
  Receive Date: 20240109
  Receipt Date: 20250924
  Transmission Date: 20251020
  Serious: Yes (Hospitalization, Other)
  Sender: SANOFI AVENTIS
  Company Number: US-SA-SAC20240104000430

PATIENT
  Age: 45 Year
  Sex: Female

DRUGS (33)
  1. REZUROCK [Suspect]
     Active Substance: BELUMOSUDIL
     Indication: Acute myeloid leukaemia
     Dosage: 200 MG, BID
     Route: 048
     Dates: start: 202307
  2. ATORVASTATIN [Concomitant]
     Active Substance: ATORVASTATIN
  3. ATORVASTATIN [Concomitant]
     Active Substance: ATORVASTATIN
  4. ADVAIR HFA [Concomitant]
     Active Substance: FLUTICASONE PROPIONATE\SALMETEROL XINAFOATE
  5. ADVAIR HFA [Concomitant]
     Active Substance: FLUTICASONE PROPIONATE\SALMETEROL XINAFOATE
  6. BECLOMETHASONE DIPROPIONATE [Concomitant]
     Active Substance: BECLOMETHASONE DIPROPIONATE
  7. AZITHROMYCIN [Concomitant]
     Active Substance: AZITHROMYCIN
  8. AZITHROMYCIN [Concomitant]
     Active Substance: AZITHROMYCIN
  9. ACYCLOVIR [Concomitant]
     Active Substance: ACYCLOVIR
  10. CLOBETASOL PROPIONATE [Concomitant]
     Active Substance: CLOBETASOL PROPIONATE
  11. PRASTERONE [Concomitant]
     Active Substance: PRASTERONE
  12. ELIQUIS [Concomitant]
     Active Substance: APIXABAN
  13. FIORICET WITH CODEINE [Concomitant]
     Active Substance: ACETAMINOPHEN\BUTALBITAL\CAFFEINE\CODEINE PHOSPHATE
  14. FUROSEMIDE [Concomitant]
     Active Substance: FUROSEMIDE
  15. HYDROCORTISONE [Concomitant]
     Active Substance: HYDROCORTISONE
  16. JAKAFI [Concomitant]
     Active Substance: RUXOLITINIB
  17. KLOR-CON M10 [Concomitant]
     Active Substance: POTASSIUM CHLORIDE
  18. LEVOTHYROXINE [Concomitant]
     Active Substance: LEVOTHYROXINE
  19. LORAZEPAM [Concomitant]
     Active Substance: LORAZEPAM
  20. LOVENOX [Concomitant]
     Active Substance: ENOXAPARIN SODIUM
  21. METHOCARBAMOL [Concomitant]
     Active Substance: METHOCARBAMOL
  22. MONTELUKAST [Concomitant]
     Active Substance: MONTELUKAST
  23. MS CONTIN [Concomitant]
     Active Substance: MORPHINE SULFATE
     Route: 065
  24. HYPROMELLOSES [Concomitant]
     Active Substance: HYPROMELLOSES
  25. OMEPRAZOLE [Concomitant]
     Active Substance: OMEPRAZOLE
  26. OXYCODONE [Concomitant]
     Active Substance: OXYCODONE
  27. PROMETHAZINE [Concomitant]
     Active Substance: PROMETHAZINE HYDROCHLORIDE
  28. COLLAGENASE SANTYL [Concomitant]
     Active Substance: COLLAGENASE CLOSTRIDIUM HISTOLYTICUM
  29. SENNA S [Concomitant]
     Active Substance: DOCUSATE SODIUM\SENNOSIDES
  30. SERTRALINE [Concomitant]
     Active Substance: SERTRALINE HYDROCHLORIDE
  31. SIROLIMUS [Concomitant]
     Active Substance: SIROLIMUS
  32. TUMS ULTRA [Concomitant]
     Active Substance: CALCIUM CARBONATE
  33. ZOFRAN [Concomitant]
     Active Substance: ONDANSETRON HYDROCHLORIDE

REACTIONS (7)
  - Pneumonia [Recovering/Resolving]
  - Abdominal discomfort [Not Recovered/Not Resolved]
  - Migraine [Not Recovered/Not Resolved]
  - Headache [Unknown]
  - Nausea [Not Recovered/Not Resolved]
  - Muscle spasms [Not Recovered/Not Resolved]
  - Product use in unapproved indication [Unknown]

NARRATIVE: CASE EVENT DATE: 20230101
